FAERS Safety Report 25356596 (Version 1)
Quarter: 2025Q2

REPORT INFORMATION
  Report Type: Spontaneous
  Country: CN (occurrence: CN)
  Receive Date: 20250526
  Receipt Date: 20250526
  Transmission Date: 20250717
  Serious: Yes (Hospitalization, Other)
  Sender: BAXTER
  Company Number: None

PATIENT
  Age: 2 Year
  Sex: Male
  Weight: 15.3 kg

DRUGS (5)
  1. CYCLOPHOSPHAMIDE [Suspect]
     Active Substance: CYCLOPHOSPHAMIDE
     Indication: Acute lymphocytic leukaemia
     Dosage: 0.592 G, QD
     Route: 041
     Dates: start: 20250224, end: 20250224
  2. SODIUM CHLORIDE [Suspect]
     Active Substance: SODIUM CHLORIDE
     Dosage: 0.9 % SODIUM CHLORIDE INJECTION 250 ML + CYTARABINE FOR INJECTION 0.592 G
     Route: 041
     Dates: start: 20250224, end: 20250227
  3. SODIUM CHLORIDE [Suspect]
     Active Substance: SODIUM CHLORIDE
     Dosage: 0.9 % SODIUM CHLORIDE INJECTION 250 ML+ CYCLOPHOSPHAMIDE FOR INJECTION 0.592 G
     Route: 041
     Dates: start: 20250224, end: 20250224
  4. MERCAPTOPURINE [Suspect]
     Active Substance: MERCAPTOPURINE
     Indication: Acute lymphocytic leukaemia
     Dosage: 29.000000 MG, QD
     Route: 048
     Dates: start: 20250224, end: 20250227
  5. CYTARABINE [Suspect]
     Active Substance: CYTARABINE
     Indication: Acute lymphocytic leukaemia
     Dosage: 0.592000 G, BID
     Route: 041
     Dates: start: 20250224, end: 20250227

REACTIONS (1)
  - Myelosuppression [Recovering/Resolving]

NARRATIVE: CASE EVENT DATE: 20250303
